FAERS Safety Report 7997827-6 (Version None)
Quarter: 2011Q4

REPORT INFORMATION
  Report Type: 
  Country: None (occurrence: None)
  Receive Date: 20111221
  Receipt Date: 20110708
  Transmission Date: 20120403
  Serious: Yes (Hospitalization)
  Sender: FDA-Public Use
  Company Number: US-PFIZER INC-K201100804

PATIENT
  Age: 80 Year
  Sex: Female

DRUGS (1)
  1. EPIPEN [Suspect]
     Indication: FOOD ALLERGY
     Dosage: 0.3 MG, SINGLE
     Route: 030

REACTIONS (1)
  - DRUG INEFFECTIVE [None]
